FAERS Safety Report 7918396-2 (Version None)
Quarter: 2011Q4

REPORT INFORMATION
  Report Type: 
  Country: None (occurrence: None)
  Receive Date: 20111114
  Receipt Date: 20111104
  Transmission Date: 20120403
  Serious: Yes (Hospitalization)
  Sender: FDA-Public Use
  Company Number: 1102500

PATIENT
  Sex: Female

DRUGS (3)
  1. LEUCOVORIN CALCIUM [Suspect]
     Indication: CHEMOTHERAPY
  2. OXALIPLATIN [Suspect]
     Indication: CHEMOTHERAPY
  3. FLUOROURACIL [Suspect]
     Indication: CHEMOTHERAPY

REACTIONS (6)
  - MUSCULOSKELETAL STIFFNESS [None]
  - ARTHRALGIA [None]
  - SKIN TIGHTNESS [None]
  - MALAISE [None]
  - SKIN EXFOLIATION [None]
  - ARTHRITIS [None]
